FAERS Safety Report 10171969 (Version 1)
Quarter: 2014Q2

REPORT INFORMATION
  Report Type: Spontaneous
  Country: ZA (occurrence: ZA)
  Receive Date: 20140515
  Receipt Date: 20140515
  Transmission Date: 20141212
  Serious: Yes (Other)
  Sender: FDA-Public Use
  Company Number: ZA-PFIZER INC-2014130256

PATIENT
  Age: 57 Year
  Sex: Female

DRUGS (2)
  1. PREMELLE [Suspect]
     Dosage: 2.5 MG, UNK
     Route: 048
     Dates: start: 2001
  2. ASENAPINE MALEATE [Suspect]
     Indication: BIPOLAR DISORDER
     Dosage: 5 MG, UNK
     Dates: start: 201303

REACTIONS (2)
  - Deep vein thrombosis [Unknown]
  - Pain in extremity [Unknown]
